FAERS Safety Report 24830178 (Version 1)
Quarter: 2025Q1

REPORT INFORMATION
  Report Type: Spontaneous
  Country: CA (occurrence: CA)
  Receive Date: 20250110
  Receipt Date: 20250110
  Transmission Date: 20250408
  Serious: Yes (Hospitalization, Other)
  Sender: SANDOZ
  Company Number: CA-SANDOZ-SDZ2024CA072516

PATIENT
  Age: 65 Year
  Sex: Female

DRUGS (39)
  1. APIXABAN [Suspect]
     Active Substance: APIXABAN
     Indication: Product used for unknown indication
     Dosage: 5 MG, 2 EVERY 1 DAY
     Route: 065
  2. BREXPIPRAZOLE [Suspect]
     Active Substance: BREXPIPRAZOLE
     Indication: Depression
     Route: 065
  3. BREXPIPRAZOLE [Suspect]
     Active Substance: BREXPIPRAZOLE
     Indication: Insomnia
  4. BUPROPION [Suspect]
     Active Substance: BUPROPION
     Route: 065
  5. BUPROPION [Suspect]
     Active Substance: BUPROPION
     Dosage: 400 MG, QD
     Route: 065
  6. BUPROPION [Suspect]
     Active Substance: BUPROPION
     Indication: Depression
     Dosage: 450 MG, QD (1 EVERY 1 DAYS)
     Route: 065
  7. BUPROPION [Suspect]
     Active Substance: BUPROPION
     Route: 065
  8. CANNABIS SATIVA FLOWERING TOP [Suspect]
     Active Substance: CANNABIS SATIVA FLOWERING TOP
     Indication: Insomnia
     Route: 065
  9. CLOMIPRAMINE [Suspect]
     Active Substance: CLOMIPRAMINE
     Indication: Depression
     Route: 065
  10. ESCITALOPRAM [Suspect]
     Active Substance: ESCITALOPRAM OXALATE
     Indication: Depression
     Route: 065
  11. FLUOXETINE [Suspect]
     Active Substance: FLUOXETINE HYDROCHLORIDE
     Indication: Depression
     Route: 065
  12. FLUVOXAMINE [Suspect]
     Active Substance: FLUVOXAMINE
     Indication: Depression
     Route: 065
  13. GABAPENTIN [Suspect]
     Active Substance: GABAPENTIN
     Indication: Depression
     Route: 065
  14. LORAZEPAM [Suspect]
     Active Substance: LORAZEPAM
     Indication: Depression
     Route: 065
  15. LAMOTRIGINE [Suspect]
     Active Substance: LAMOTRIGINE
     Indication: Product used for unknown indication
     Dosage: 300 MG, QD
     Route: 065
  16. LAMOTRIGINE [Suspect]
     Active Substance: LAMOTRIGINE
     Route: 065
  17. LEMBOREXANT [Suspect]
     Active Substance: LEMBOREXANT
     Indication: Insomnia
     Route: 065
  18. LEMBOREXANT [Suspect]
     Active Substance: LEMBOREXANT
     Indication: Depression
  19. LURASIDONE HYDROCHLORIDE [Suspect]
     Active Substance: LURASIDONE HYDROCHLORIDE
     Dosage: 20 MG, QD (1 EVERY 1 DAYS)
     Route: 065
  20. LURASIDONE HYDROCHLORIDE [Suspect]
     Active Substance: LURASIDONE HYDROCHLORIDE
     Indication: Depression
     Dosage: 40 MG, QD
     Route: 065
  21. LEVOMEPROMAZINE [Suspect]
     Active Substance: LEVOMEPROMAZINE
     Indication: Depression
     Route: 065
  22. MIRTAZAPINE [Suspect]
     Active Substance: MIRTAZAPINE
     Indication: Depression
     Route: 065
  23. OLANZAPINE [Suspect]
     Active Substance: OLANZAPINE
     Indication: Depression
     Route: 065
  24. PRAMIPEXOLE DIHYDROCHLORIDE [Suspect]
     Active Substance: PRAMIPEXOLE DIHYDROCHLORIDE
     Dosage: 0.25 MG, 2 EVERY 1 DAYS
     Route: 065
  25. PRAMIPEXOLE DIHYDROCHLORIDE [Suspect]
     Active Substance: PRAMIPEXOLE DIHYDROCHLORIDE
     Indication: Depression
     Route: 065
  26. PANTOPRAZOLE SODIUM [Suspect]
     Active Substance: PANTOPRAZOLE SODIUM
     Indication: Product used for unknown indication
     Dosage: 40 MG, QD (1 EVERY 1 DAYS)
     Route: 065
  27. PANTOPRAZOLE SODIUM [Suspect]
     Active Substance: PANTOPRAZOLE SODIUM
     Route: 065
  28. PAROXETINE HYDROCHLORIDE [Suspect]
     Active Substance: PAROXETINE HYDROCHLORIDE
     Indication: Depression
     Route: 065
  29. QUETIAPINE FUMARATE [Suspect]
     Active Substance: QUETIAPINE FUMARATE
     Indication: Depression
     Route: 065
  30. RISPERIDONE [Suspect]
     Active Substance: RISPERIDONE
     Indication: Depression
     Route: 065
  31. VENLAFAXINE HYDROCHLORIDE [Suspect]
     Active Substance: VENLAFAXINE HYDROCHLORIDE
     Indication: Depression
     Route: 065
  32. VORTIOXETINE [Suspect]
     Active Substance: VORTIOXETINE
     Indication: Depression
     Dosage: 10 MG, QD (1 EVERY 1 DAYS)
     Route: 065
  33. ZOLPIDEM [Suspect]
     Active Substance: ZOLPIDEM TARTRATE
     Indication: Depression
     Route: 065
  34. ZOPICLONE [Suspect]
     Active Substance: ZOPICLONE
     Indication: Depression
     Route: 065
  35. MOCLOBEMIDE [Concomitant]
     Active Substance: MOCLOBEMIDE
     Route: 065
  36. MOCLOBEMIDE [Concomitant]
     Active Substance: MOCLOBEMIDE
     Indication: Depression
     Dosage: 600 MG, QD (1 EVERY 1 DAYS)
     Route: 065
  37. MOCLOBEMIDE [Concomitant]
     Active Substance: MOCLOBEMIDE
     Dosage: 750 MG, QD (1 EVERY 1 DAYS)
     Route: 065
  38. VENLAFAXINE HYDROCHLORIDE [Concomitant]
     Active Substance: VENLAFAXINE HYDROCHLORIDE
     Route: 065
  39. VENLAFAXINE HYDROCHLORIDE [Concomitant]
     Active Substance: VENLAFAXINE HYDROCHLORIDE
     Indication: Product used for unknown indication
     Route: 065

REACTIONS (5)
  - Suicide attempt [Recovered/Resolved]
  - Adverse drug reaction [Recovered/Resolved]
  - Condition aggravated [Recovered/Resolved]
  - Suicidal ideation [Recovered/Resolved]
  - Drug ineffective [Unknown]
